FAERS Safety Report 18096504 (Version 2)
Quarter: 2020Q3

REPORT INFORMATION
  Report Type: Spontaneous
  Country: US (occurrence: US)
  Receive Date: 20200730
  Receipt Date: 20200730
  Transmission Date: 20201103
  Serious: Yes (Other)
  Sender: FDA-Public Use
  Company Number: US-CELGENEUS-USA-20200706980

PATIENT
  Sex: Male
  Weight: 70.37 kg

DRUGS (4)
  1. REVLIMID [Suspect]
     Active Substance: LENALIDOMIDE
     Indication: PLASMA CELL MYELOMA
     Dosage: 25 MILLIGRAM
     Route: 048
     Dates: start: 201412
  2. REVLIMID [Suspect]
     Active Substance: LENALIDOMIDE
     Dosage: 10 TO 7.5 MG
     Route: 048
     Dates: start: 201508
  3. REVLIMID [Suspect]
     Active Substance: LENALIDOMIDE
     Dosage: 10 MILLIGRAM
     Route: 048
     Dates: start: 201709
  4. REVLIMID [Suspect]
     Active Substance: LENALIDOMIDE
     Dosage: 100 MILLIGRAM
     Route: 048
     Dates: start: 201504

REACTIONS (9)
  - Kidney infection [Unknown]
  - Weight decreased [Unknown]
  - Cystitis [Unknown]
  - Squamous cell carcinoma of head and neck [Unknown]
  - Bladder cancer [Unknown]
  - Squamous cell carcinoma of skin [Unknown]
  - Precancerous condition [Unknown]
  - Nasopharyngitis [Unknown]
  - Basal cell carcinoma [Unknown]
